FAERS Safety Report 7136023-1 (Version None)
Quarter: 2010Q4

REPORT INFORMATION
  Report Type: 
  Country: None (occurrence: None)
  Receive Date: 20101204
  Receipt Date: 20100701
  Transmission Date: 20110411
  Serious: Yes (Other)
  Sender: FDA-Public Use
  Company Number: US-BAYER-201027021NA

PATIENT

DRUGS (1)
  1. YASMIN [Suspect]
     Route: 048
     Dates: start: 20030101, end: 20040101

REACTIONS (2)
  - CHOLECYSTECTOMY [None]
  - GALLBLADDER INJURY [None]
